FAERS Safety Report 12747782 (Version 1)
Quarter: 2016Q3

REPORT INFORMATION
  Report Type: Report from Study
  Country: PL (occurrence: PL)
  Receive Date: 20160915
  Receipt Date: 20160915
  Transmission Date: 20161109
  Serious: Yes (Other)
  Sender: FDA-Public Use
  Company Number: PL-TEVA-692058ISR

PATIENT

DRUGS (2)
  1. PSEUDOEPHEDRINE [Interacting]
     Active Substance: PSEUDOEPHEDRINE
  2. VENLAFAXINE [Suspect]
     Active Substance: VENLAFAXINE HYDROCHLORIDE
     Indication: PAIN

REACTIONS (2)
  - Hypertensive crisis [Unknown]
  - Drug interaction [Unknown]
